FAERS Safety Report 7412711-4 (Version None)
Quarter: 2011Q2

REPORT INFORMATION
  Report Type: 
  Country: None (occurrence: None)
  Receive Date: 20110413
  Receipt Date: 20100303
  Transmission Date: 20111010
  Serious: Yes (Other)
  Sender: FDA-Public Use
  Company Number: A0849351A

PATIENT
  Age: 59 Year
  Sex: Male

DRUGS (1)
  1. AVANDIA [Suspect]
     Indication: DIABETES MELLITUS
     Route: 048
     Dates: start: 20081215

REACTIONS (4)
  - CARDIAC FAILURE CONGESTIVE [None]
  - LUNG DISORDER [None]
  - RENAL FAILURE [None]
  - LIMB INJURY [None]
